FAERS Safety Report 7415877-5 (Version None)
Quarter: 2011Q2

REPORT INFORMATION
  Report Type: 
  Country: None (occurrence: None)
  Receive Date: 20110414
  Receipt Date: 20110329
  Transmission Date: 20111010
  Serious: No
  Sender: FDA-Public Use
  Company Number: PHHY2011BE17726

PATIENT
  Age: 64 Year
  Sex: Male

DRUGS (3)
  1. HEPARIN [Concomitant]
  2. GLEEVEC [Suspect]
     Indication: GASTROINTESTINAL STROMAL TUMOUR
     Dosage: 400 MG, QD
     Dates: start: 20091201
  3. GLEEVEC [Suspect]
     Dosage: 200 MG, DAILY
     Route: 048
     Dates: start: 20110308

REACTIONS (3)
  - WEIGHT INCREASED [None]
  - PHLEBITIS SUPERFICIAL [None]
  - OEDEMA PERIPHERAL [None]
